FAERS Safety Report 20721004 (Version 1)
Quarter: 2022Q2

REPORT INFORMATION
  Report Type: Spontaneous
  Country: US (occurrence: None)
  Receive Date: 20220415
  Receipt Date: 20220415
  Transmission Date: 20220721
  Serious: Yes (Disabling)
  Sender: FDA-Public Use
  Company Number: None

PATIENT
  Age: 48 Year
  Sex: Female
  Weight: 70.65 kg

DRUGS (2)
  1. PERJETA [Suspect]
     Active Substance: PERTUZUMAB
     Indication: Breast cancer metastatic
     Dosage: OTHER QUANTITY : 840 IV LOADING DOSE;?OTHER FREQUENCY : ONE TIME;?
     Route: 042
     Dates: start: 20220315
  2. KANJINTI [Concomitant]

REACTIONS (5)
  - Epistaxis [None]
  - Lip haemorrhage [None]
  - Abdominal pain upper [None]
  - Small intestinal haemorrhage [None]
  - Pain [None]

NARRATIVE: CASE EVENT DATE: 20220324
